FAERS Safety Report 24564434 (Version 1)
Quarter: 2024Q4

REPORT INFORMATION
  Report Type: Spontaneous
  Country: US (occurrence: US)
  Receive Date: 20241030
  Receipt Date: 20241030
  Transmission Date: 20250114
  Serious: Yes (Hospitalization, Other)
  Sender: HIKMA
  Company Number: US-HIKMA PHARMACEUTICALS USA INC.-US-H14001-24-09838

PATIENT
  Age: 76 Year
  Sex: Female
  Weight: 54.7 kg

DRUGS (3)
  1. CARFILZOMIB [Suspect]
     Active Substance: CARFILZOMIB
     Indication: Plasma cell myeloma
     Dosage: 40 MILLIGRAM, WEEKLY
     Route: 042
     Dates: start: 20211119, end: 20211124
  2. DEXAMETHASONE [Suspect]
     Active Substance: DEXAMETHASONE
     Indication: Plasma cell myeloma
     Dosage: 40 MILLIGRAM, WEEKLY
     Route: 042
     Dates: start: 20211028, end: 20211124
  3. MAPLIRPACEPT [Suspect]
     Active Substance: MAPLIRPACEPT
     Indication: Plasma cell myeloma
     Dosage: 8 MILLIGRAM/KILOGRAM, WEEKLY
     Route: 042
     Dates: start: 20211119, end: 20241124

REACTIONS (5)
  - Mental status changes [Recovered/Resolved]
  - Confusional state [Unknown]
  - Fatigue [Unknown]
  - Muscular weakness [Unknown]
  - Eye disorder [Unknown]

NARRATIVE: CASE EVENT DATE: 20211103
